FAERS Safety Report 25611803 (Version 2)
Quarter: 2025Q3

REPORT INFORMATION
  Report Type: Spontaneous
  Country: EU (occurrence: EU)
  Receive Date: 20250728
  Receipt Date: 20250805
  Transmission Date: 20251020
  Serious: No
  Sender: NOVARTIS
  Company Number: EU-002147023-NVSC2025DE118955

PATIENT
  Sex: Male

DRUGS (1)
  1. KESIMPTA [Suspect]
     Active Substance: OFATUMUMAB
     Indication: Product used for unknown indication
     Route: 065
     Dates: start: 202403

REACTIONS (2)
  - Gamma-glutamyltransferase increased [Unknown]
  - Blood immunoglobulin G decreased [Unknown]
